FAERS Safety Report 8594609-1 (Version None)
Quarter: 2012Q3

REPORT INFORMATION
  Report Type: 
  Country: None (occurrence: None)
  Receive Date: 20120815
  Receipt Date: 20120808
  Transmission Date: 20120928
  Serious: No
  Sender: FDA-Public Use
  Company Number: US-PFIZER INC-2012194504

PATIENT
  Age: 73 Year
  Sex: Male

DRUGS (1)
  1. SUTENT [Suspect]
     Indication: GASTRIC CANCER
     Dosage: 12.5 MG, UNK
     Dates: start: 20120522, end: 20120522

REACTIONS (3)
  - DRUG INTOLERANCE [None]
  - GASTRIC CANCER [None]
  - DISEASE PROGRESSION [None]
